FAERS Safety Report 10485993 (Version 1)
Quarter: 2014Q3

REPORT INFORMATION
  Report Type: Spontaneous
  Country: US (occurrence: None)
  Receive Date: 20140930
  Receipt Date: 20140930
  Transmission Date: 20150326
  Serious: No
  Sender: FDA-Public Use
  Company Number: None

PATIENT
  Age: 73 Year
  Sex: Male

DRUGS (11)
  1. KETAMINE [Concomitant]
     Active Substance: KETAMINE
  2. BACLOFEN. [Concomitant]
     Active Substance: BACLOFEN
  3. TRANILAST [Suspect]
     Active Substance: TRANILAST
     Indication: PAIN
     Route: 061
     Dates: start: 20140825
  4. DMSO BLADDER INSTILATION [Concomitant]
     Active Substance: DIMETHYL SULFOXIDE
  5. CYCLOBENZAPRINE [Concomitant]
     Active Substance: CYCLOBENZAPRINE
  6. METHADONE [Suspect]
     Active Substance: METHADONE HYDROCHLORIDE
  7. GABAPENTIN. [Concomitant]
     Active Substance: GABAPENTIN
  8. LIDOCAINE. [Concomitant]
     Active Substance: LIDOCAINE
  9. GABAPENTIN. [Suspect]
     Active Substance: GABAPENTIN
  10. PROPYLENE GLYCOL [Concomitant]
     Active Substance: PROPYLENE GLYCOL
  11. TIZANIDINE [Suspect]
     Active Substance: TIZANIDINE

REACTIONS (1)
  - Off label use [None]

NARRATIVE: CASE EVENT DATE: 20140825
